FAERS Safety Report 6893778-9 (Version None)
Quarter: 2010Q3

REPORT INFORMATION
  Report Type: 
  Country: None (occurrence: None)
  Receive Date: 20100802
  Receipt Date: 20100727
  Transmission Date: 20110219
  Serious: Yes (Hospitalization, Other)
  Sender: FDA-Public Use
  Company Number: JP-BIOGENIDEC-2009BI032305

PATIENT
  Age: 45 Year
  Sex: Male

DRUGS (3)
  1. AVONEX [Suspect]
     Indication: RELAPSING-REMITTING MULTIPLE SCLEROSIS
     Route: 030
     Dates: start: 20090203
  2. IBRUPROFEN [Concomitant]
     Dates: start: 20090203
  3. MARZULENE-S [Concomitant]
     Dates: start: 20090203

REACTIONS (3)
  - DIVERTICULITIS [None]
  - PERITONITIS [None]
  - RECTAL ADENOMA [None]
